FAERS Safety Report 13486859 (Version 4)
Quarter: 2017Q2

REPORT INFORMATION
  Report Type: Spontaneous
  Country: PS (occurrence: PS)
  Receive Date: 20170426
  Receipt Date: 20170605
  Transmission Date: 20170830
  Serious: Yes (Hospitalization, Other)
  Sender: FDA-Public Use
  Company Number: PHHY2017PS059295

PATIENT
  Age: 32 Year
  Sex: Male

DRUGS (1)
  1. TASIGNA [Suspect]
     Active Substance: NILOTINIB
     Indication: CHRONIC MYELOID LEUKAEMIA
     Dosage: UNK
     Route: 048
     Dates: start: 201611, end: 20170418

REACTIONS (20)
  - Blast crisis in myelogenous leukaemia [Unknown]
  - Diplegia [Recovering/Resolving]
  - Mass [Recovering/Resolving]
  - Asthenia [Unknown]
  - Fatigue [Unknown]
  - Feeling cold [Unknown]
  - Spinal cord compression [Recovering/Resolving]
  - Walking disability [Unknown]
  - Muscle spasms [Unknown]
  - Heart rate decreased [Unknown]
  - Chloroma [Recovered/Resolved]
  - Paralysis [Recovering/Resolving]
  - Myalgia [Unknown]
  - Hypoaesthesia [Unknown]
  - Gait disturbance [Unknown]
  - Discomfort [Unknown]
  - Sensory loss [Unknown]
  - Intervertebral disc degeneration [Unknown]
  - Pain [Unknown]
  - Intermittent claudication [Unknown]

NARRATIVE: CASE EVENT DATE: 20170418
